FAERS Safety Report 9788536 (Version 1)
Quarter: 2013Q4

REPORT INFORMATION
  Report Type: Spontaneous
  Country: US (occurrence: US)
  Receive Date: 20131230
  Receipt Date: 20131230
  Transmission Date: 20140711
  Serious: Yes (Other)
  Sender: FDA-Public Use
  Company Number: US-BAYER-2013-158756

PATIENT
  Age: 17 Year
  Sex: Female

DRUGS (9)
  1. YAZ [Suspect]
  2. EPIPEN [Concomitant]
     Dosage: 0.3 MG, UNK
     Route: 030
  3. SINGULAIR [Concomitant]
     Dosage: 10 MG, UNK
  4. ASMANEX [Concomitant]
     Dosage: 220 ?G, UNK
  5. HCG [Concomitant]
  6. MORPHINE [Concomitant]
  7. REGLAN [Concomitant]
     Indication: NAUSEA
  8. PROTONIX [Concomitant]
  9. BENADRYL [ACRIVASTINE] [Concomitant]

REACTIONS (1)
  - Gallbladder injury [None]
